FAERS Safety Report 17419037 (Version 3)
Quarter: 2020Q1

REPORT INFORMATION
  Report Type: Spontaneous
  Country: US (occurrence: US)
  Receive Date: 20200214
  Receipt Date: 20200320
  Transmission Date: 20200409
  Serious: Yes (Other)
  Sender: FDA-Public Use
  Company Number: US-BAYER-2020-020763

PATIENT
  Age: 71 Year
  Sex: Female

DRUGS (1)
  1. MOXIFLOXACIN ORAL [Suspect]
     Active Substance: MOXIFLOXACIN
     Indication: GASTROINTESTINAL DISORDER
     Dosage: UNK
     Route: 048

REACTIONS (5)
  - Vaginal infection [Unknown]
  - Adverse drug reaction [None]
  - Gastrointestinal disorder [Unknown]
  - Infection [Unknown]
  - Enterocolitis infectious [Unknown]
